FAERS Safety Report 7527139-6 (Version None)
Quarter: 2011Q2

REPORT INFORMATION
  Report Type: 
  Country: None (occurrence: None)
  Receive Date: 20110607
  Receipt Date: 20110527
  Transmission Date: 20111010
  Serious: Yes (Hospitalization)
  Sender: FDA-Public Use
  Company Number: US-BIOGENIDEC-2011BI012743

PATIENT
  Age: 29 Year
  Sex: Male

DRUGS (2)
  1. TYSABRI [Suspect]
     Indication: MULTIPLE SCLEROSIS
     Route: 042
     Dates: start: 20091203
  2. BACLOFEN [Concomitant]
     Route: 037

REACTIONS (5)
  - DRUG DELIVERY DEVICE IMPLANTATION [None]
  - THROMBOSIS [None]
  - MEDICAL DEVICE COMPLICATION [None]
  - POSTOPERATIVE WOUND INFECTION [None]
  - ASTHENIA [None]
